FAERS Safety Report 21510516 (Version 1)
Quarter: 2022Q4

REPORT INFORMATION
  Report Type: Report from Study
  Country: US (occurrence: US)
  Receive Date: 20221026
  Receipt Date: 20221026
  Transmission Date: 20230113
  Serious: Yes (Hospitalization)
  Sender: FDA-Public Use
  Company Number: US-JAZZ-2022-US-013408

PATIENT
  Sex: Female

DRUGS (4)
  1. XYREM [Suspect]
     Active Substance: SODIUM OXYBATE
     Indication: Narcolepsy
     Dosage: UNK
  2. XYREM [Suspect]
     Active Substance: SODIUM OXYBATE
     Indication: Cataplexy
  3. XYREM [Suspect]
     Active Substance: SODIUM OXYBATE
     Indication: Somnolence
  4. SUCRALOSE [Suspect]
     Active Substance: SUCRALOSE
     Indication: Product used for unknown indication

REACTIONS (10)
  - Fall [Unknown]
  - Speech disorder [Unknown]
  - Constipation [Unknown]
  - Tremor [Unknown]
  - Dry mouth [Unknown]
  - Hypersensitivity [Unknown]
  - Oropharyngeal discomfort [Unknown]
  - Cough [Unknown]
  - Extra dose administered [Unknown]
  - Product dose omission issue [Unknown]
